FAERS Safety Report 8829222 (Version 1)
Quarter: 2012Q4

REPORT INFORMATION
  Report Type: Spontaneous
  Country: US (occurrence: None)
  Receive Date: 20121005
  Receipt Date: 20121005
  Transmission Date: 20130627
  Serious: Yes (Life-Threatening, Hospitalization, Disabling)
  Sender: FDA-Public Use
  Company Number: None

PATIENT
  Sex: Female
  Weight: 73.03 kg

DRUGS (2)
  1. FENFLURAMINE [Suspect]
     Indication: OBESITY
     Dates: start: 1997
  2. FEN PHEN [Concomitant]

REACTIONS (4)
  - Dyspnoea [None]
  - Abasia [None]
  - Cardiac disorder [None]
  - Fatigue [None]
